FAERS Safety Report 23398529 (Version 1)
Quarter: 2024Q1

REPORT INFORMATION
  Report Type: Spontaneous
  Country: US (occurrence: US)
  Receive Date: 20240112
  Receipt Date: 20240112
  Transmission Date: 20240409
  Serious: No
  Sender: FDA-Public Use
  Company Number: US-PERRIGO-23US013196

PATIENT
  Age: 45 Year
  Sex: Female
  Weight: 77.098 kg

DRUGS (2)
  1. IBUPROFEN [Suspect]
     Active Substance: IBUPROFEN
     Indication: Oral pain
     Dosage: 600 MG, TWICE
     Route: 048
     Dates: start: 20231113, end: 20231113
  2. IBUPROFEN [Suspect]
     Active Substance: IBUPROFEN
     Indication: Alveolar osteitis

REACTIONS (2)
  - Abdominal pain upper [Recovered/Resolved]
  - Incorrect dose administered [Unknown]

NARRATIVE: CASE EVENT DATE: 20231113
